FAERS Safety Report 11591107 (Version 2)
Quarter: 2015Q4

REPORT INFORMATION
  Report Type: Spontaneous
  Country: RO (occurrence: RO)
  Receive Date: 20151003
  Receipt Date: 20151028
  Transmission Date: 20160304
  Serious: Yes (Other)
  Sender: FDA-Public Use
  Company Number: RO-HORIZON-VIM-0110-2015

PATIENT
  Age: 64 Year
  Sex: Female
  Weight: 95 kg

DRUGS (8)
  1. VIMOVO [Suspect]
     Active Substance: ESOMEPRAZOLE MAGNESIUM\NAPROXEN
     Indication: OSTEOARTHRITIS
     Dosage: MONTHLY
     Route: 048
  2. SPIRONOLACTONE. [Concomitant]
     Active Substance: SPIRONOLACTONE
  3. ZOMER [Concomitant]
  4. PROSTAT [Concomitant]
     Active Substance: SAW PALMETTO
  5. INDAPAMIDE. [Concomitant]
     Active Substance: INDAPAMIDE
  6. OMEZ [Concomitant]
     Active Substance: OMEPRAZOLE
  7. NITROMINT [Concomitant]
  8. TELMISARTAN. [Concomitant]
     Active Substance: TELMISARTAN

REACTIONS (2)
  - Tachycardia [Recovered/Resolved]
  - Respiratory failure [Recovered/Resolved]
